FAERS Safety Report 6235412-7 (Version None)
Quarter: 2009Q2

REPORT INFORMATION
  Report Type: 
  Country: None (occurrence: None)
  Receive Date: 20090618
  Receipt Date: 20090611
  Transmission Date: 20091009
  Serious: Yes (Death)
  Sender: FDA-Public Use
  Company Number: US-JNJCH-2009016360

PATIENT
  Age: 86 Year
  Sex: Male
  Weight: 56.7 kg

DRUGS (2)
  1. BENADRYL ALLERGY QUICK DISSOLVE STRIPS [Suspect]
     Indication: DEMENTIA ALZHEIMER'S TYPE
     Dosage: TEXT:ONE STRIP ONE TIME ONE HOUR APART
     Route: 048
  2. ASPIRIN [Concomitant]
     Indication: DRUG USE FOR UNKNOWN INDICATION
     Dosage: TEXT:81MG UNSPECIFIED
     Route: 048

REACTIONS (2)
  - DEATH [None]
  - OFF LABEL USE [None]
